FAERS Safety Report 10157307 (Version 6)
Quarter: 2015Q1

REPORT INFORMATION
  Report Type: Spontaneous
  Country: US (occurrence: US)
  Receive Date: 20140507
  Receipt Date: 20150122
  Transmission Date: 20150720
  Serious: Yes (Life-Threatening, Hospitalization, Other)
  Sender: FDA-Public Use
  Company Number: US-DSJP-DSU-2014-00120

PATIENT

DRUGS (4)
  1. AZOR [Suspect]
     Active Substance: AMLODIPINE BESYLATE\OLMESARTAN MEDOXOMIL
     Indication: HYPERTENSION
     Dosage: 10/20 MG
     Route: 048
     Dates: start: 200801, end: 201005
  2. CENTRUM SILVER                     /01292501/ [Concomitant]
     Indication: PRODUCT USED FOR UNKNOWN INDICATION
     Dosage: UNK
  3. BENICAR [Suspect]
     Active Substance: OLMESARTAN MEDOXOMIL
     Indication: PRODUCT USED FOR UNKNOWN INDICATION
     Dosage: 20 MG, SINGLE
  4. AZOR [Suspect]
     Active Substance: AMLODIPINE BESYLATE\OLMESARTAN MEDOXOMIL
     Dosage: 1040 MG, QD
     Dates: start: 201005, end: 20100624

REACTIONS (16)
  - Depression [Recovering/Resolving]
  - Chronic kidney disease [Recovering/Resolving]
  - Septic embolus [Recovering/Resolving]
  - Acute kidney injury [Recovered/Resolved]
  - Overgrowth bacterial [Unknown]
  - Cytomegalovirus colitis [Recovering/Resolving]
  - Urinary tract infection [Recovered/Resolved]
  - Decubitus ulcer [Recovering/Resolving]
  - Iritis [Recovering/Resolving]
  - Gastric polyps [Recovered/Resolved]
  - Bacteraemia [Recovering/Resolving]
  - Insomnia [Recovering/Resolving]
  - Gastrooesophageal reflux disease [Recovering/Resolving]
  - Large intestinal ulcer [Recovering/Resolving]
  - Malabsorption [Recovering/Resolving]
  - Hiatus hernia [Unknown]

NARRATIVE: CASE EVENT DATE: 2008
